FAERS Safety Report 16288345 (Version 1)
Quarter: 2019Q2

REPORT INFORMATION
  Report Type: Spontaneous
  Country: CN (occurrence: CN)
  Receive Date: 20190508
  Receipt Date: 20190508
  Transmission Date: 20190711
  Serious: Yes (Other)
  Sender: FDA-Public Use
  Company Number: CN-STRIDES ARCOLAB LIMITED-2019SP003848

PATIENT
  Age: 50 Year
  Sex: Female

DRUGS (1)
  1. METRONIDAZOLE. [Suspect]
     Active Substance: METRONIDAZOLE
     Indication: LOCALISED INFECTION
     Dosage: UNK
     Route: 042

REACTIONS (9)
  - Anaphylactic reaction [Unknown]
  - Corneal infiltrates [Recovered/Resolved]
  - Keratitis [Recovered/Resolved]
  - Photophobia [Recovered/Resolved]
  - Pain [Recovered/Resolved]
  - Sensation of foreign body [Recovered/Resolved]
  - Conjunctival hyperaemia [Recovered/Resolved]
  - Lacrimation increased [Recovered/Resolved]
  - Mouth ulceration [Unknown]
